FAERS Safety Report 6887367-X (Version None)
Quarter: 2010Q3

REPORT INFORMATION
  Report Type: 
  Country: None (occurrence: None)
  Receive Date: 20100730
  Receipt Date: 20091027
  Transmission Date: 20110219
  Serious: No
  Sender: FDA-Public Use
  Company Number: A0813631A

PATIENT
  Age: 55 Year
  Sex: Female

DRUGS (5)
  1. SUMATRIPTAN SUCCINATE [Suspect]
     Indication: MIGRAINE
     Dosage: 50MG AS REQUIRED
     Route: 048
     Dates: start: 20090901
  2. CLONAZEPAM [Concomitant]
  3. ALPRAZOLAM [Concomitant]
  4. RANITIDINE [Concomitant]
  5. CITALOPRAM [Concomitant]

REACTIONS (1)
  - DRUG INEFFECTIVE [None]
